FAERS Safety Report 9119236 (Version 1)
Quarter: 2013Q1

REPORT INFORMATION
  Report Type: Spontaneous
  Country: US (occurrence: None)
  Receive Date: 20130221
  Receipt Date: 20130221
  Transmission Date: 20140127
  Serious: Yes (Other)
  Sender: FDA-Public Use
  Company Number: None

PATIENT
  Age: 23 Year
  Sex: Male
  Weight: 68.04 kg

DRUGS (1)
  1. CIPROFLOXACIN HCL [Suspect]
     Indication: PROSTATITIS
     Dosage: 3 DOSE 1 EVERY 12 HOUR PO
     Route: 048
     Dates: start: 20130214, end: 20130215

REACTIONS (3)
  - Tendon pain [None]
  - Muscle tightness [None]
  - Arthralgia [None]
